FAERS Safety Report 9758930 (Version 1)
Quarter: 2013Q4

REPORT INFORMATION
  Report Type: Spontaneous
  Country: US (occurrence: None)
  Receive Date: 20131216
  Receipt Date: 20131216
  Transmission Date: 20140711
  Serious: Yes (Other)
  Sender: FDA-Public Use
  Company Number: 1211USA011405

PATIENT
  Age: 73 Year
  Sex: Female

DRUGS (2)
  1. COSOPT [Suspect]
     Indication: GLAUCOMA
     Dosage: 2 GTT, FOR THREE DAYS WITH ONE DAY REST, OPHTHALMIC
  2. DORZOLAMIDE HYDROCHLORIDE (+) TIMOLOL MALEATE (DORZOLAMIDE HYDROCHLORI [Suspect]
     Indication: GLAUCOMA
     Dosage: UNK UNK, BID, EVERY FOUR DAYS, OPHTHALMIC?UNK

REACTIONS (4)
  - Ocular hyperaemia [None]
  - Eye pruritus [None]
  - Product quality issue [None]
  - Eye irritation [None]
